FAERS Safety Report 6815812-4 (Version None)
Quarter: 2010Q3

REPORT INFORMATION
  Report Type: 
  Country: None (occurrence: None)
  Receive Date: 20100705
  Receipt Date: 20100623
  Transmission Date: 20110219
  Serious: Yes (Hospitalization)
  Sender: FDA-Public Use
  Company Number: US-BIOGENIDEC-2009BI031680

PATIENT
  Age: 61 Year
  Sex: Female

DRUGS (1)
  1. TYSABRI [Suspect]
     Indication: MULTIPLE SCLEROSIS
     Route: 042
     Dates: start: 20070618

REACTIONS (13)
  - ALOPECIA [None]
  - CONFUSIONAL STATE [None]
  - DRUG SPECIFIC ANTIBODY PRESENT [None]
  - DYSPHEMIA [None]
  - FATIGUE [None]
  - HEADACHE [None]
  - HERPES ZOSTER [None]
  - MEMORY IMPAIRMENT [None]
  - MENINGITIS ASEPTIC [None]
  - MENINGITIS HERPES [None]
  - PRURITUS [None]
  - VIRAL INFECTION [None]
  - VOMITING [None]
